FAERS Safety Report 16112820 (Version 4)
Quarter: 2019Q2

REPORT INFORMATION
  Report Type: Spontaneous
  Country: FR (occurrence: FR)
  Receive Date: 20190325
  Receipt Date: 20190418
  Transmission Date: 20190711
  Serious: Yes (Other)
  Sender: FDA-Public Use
  Company Number: FR-JNJFOC-20190325595

PATIENT
  Age: 56 Year
  Sex: Female

DRUGS (3)
  1. HALDOL [Suspect]
     Active Substance: HALOPERIDOL
     Indication: SCHIZOPHRENIA
     Route: 048
  2. LEPTICUR [Concomitant]
     Active Substance: TROPATEPINE HYDROCHLORIDE
     Indication: PRODUCT USED FOR UNKNOWN INDICATION
     Route: 065
  3. HALDOL [Suspect]
     Active Substance: HALOPERIDOL
     Indication: SCHIZOPHRENIA
     Route: 048
     Dates: start: 20190129

REACTIONS (30)
  - Depression [Unknown]
  - Constipation [Unknown]
  - Aggression [Unknown]
  - Seizure [Unknown]
  - Fatigue [Unknown]
  - Dizziness [Unknown]
  - Hot flush [Unknown]
  - Wrong technique in product usage process [Unknown]
  - Nausea [Unknown]
  - Pruritus [Unknown]
  - Dissociation [Unknown]
  - Scratch [Unknown]
  - Hunger [Unknown]
  - Vertigo [Unknown]
  - Eating disorder [Unknown]
  - Muscle contracture [Unknown]
  - Haematoma [Unknown]
  - Depersonalisation/derealisation disorder [Unknown]
  - Hypothermia [Unknown]
  - Sleep disorder [Unknown]
  - Suicidal ideation [Unknown]
  - Headache [Unknown]
  - Weight increased [Unknown]
  - Amnesia [Unknown]
  - Swelling [Unknown]
  - Emotional disorder [Unknown]
  - Feeling cold [Unknown]
  - Psychiatric symptom [Unknown]
  - Mania [Unknown]
  - Rash erythematous [Unknown]

NARRATIVE: CASE EVENT DATE: 2019
